FAERS Safety Report 26088952 (Version 1)
Quarter: 2025Q4

REPORT INFORMATION
  Report Type: Spontaneous
  Country: EU (occurrence: EU)
  Receive Date: 20251125
  Receipt Date: 20251125
  Transmission Date: 20260117
  Serious: Yes (Hospitalization)
  Sender: MYLAN
  Company Number: None

PATIENT
  Age: 4 Year
  Sex: Female
  Weight: 14.6 kg

DRUGS (3)
  1. DEXAMETHASONE [4]
     Active Substance: DEXAMETHASONE
     Indication: Product used for unknown indication
     Dosage: NOT ADMINISTERED
  2. ACETAMINOPHEN [4]
     Active Substance: ACETAMINOPHEN
     Indication: Product used for unknown indication
     Dosage: NOT ADMINISTERED
  3. BLINCYTO [Suspect]
     Active Substance: BLINATUMOMAB
     Indication: Acute lymphocytic leukaemia
     Dosage: 60 MICROGRAM/SQ. METER
     Dates: start: 20251016, end: 20251016

REACTIONS (3)
  - Hyperthermia [Recovered/Resolved]
  - Product dose omission in error [Recovered/Resolved]
  - Product administration error [Recovered/Resolved]

NARRATIVE: CASE EVENT DATE: 20251016
